FAERS Safety Report 25765973 (Version 1)
Quarter: 2025Q3

REPORT INFORMATION
  Report Type: Spontaneous
  Country: US (occurrence: US)
  Receive Date: 20250905
  Receipt Date: 20250905
  Transmission Date: 20251020
  Serious: No
  Sender: DOMPE FARMACEUTICI
  Company Number: US-FARMAPROD-202407-2703

PATIENT
  Age: 71 Year
  Sex: Female
  Weight: 56.7 kg

DRUGS (15)
  1. OXERVATE [Suspect]
     Active Substance: CENEGERMIN-BKBJ
     Indication: Neurotrophic keratopathy
     Route: 047
     Dates: start: 20240720
  2. DIGOXIN [Concomitant]
     Active Substance: DIGOXIN
  3. DILTIAZEM [Concomitant]
     Active Substance: DILTIAZEM
  4. METOPROLOL SUCCINATE [Concomitant]
     Active Substance: METOPROLOL SUCCINATE
  5. ELIQUIS [Concomitant]
     Active Substance: APIXABAN
  6. SYNTHROID [Concomitant]
     Active Substance: LEVOTHYROXINE SODIUM
  7. MELATONIN [Concomitant]
     Active Substance: MELATONIN
  8. MAGNESIUM [Concomitant]
     Active Substance: MAGNESIUM
  9. VITAMIN D3 [Concomitant]
     Active Substance: CHOLECALCIFEROL
  10. CIMZIA [Concomitant]
     Active Substance: CERTOLIZUMAB PEGOL
  11. NAPROXEN [Concomitant]
     Active Substance: NAPROXEN
  12. MURO 128 [Concomitant]
     Active Substance: SODIUM CHLORIDE
  13. SYSTANE ULTRA [Concomitant]
     Active Substance: POLYETHYLENE GLYCOL 400\PROPYLENE GLYCOL
  14. TIMOLOL MALEATE [Concomitant]
     Active Substance: TIMOLOL MALEATE
  15. LATANOPROST [Concomitant]
     Active Substance: LATANOPROST

REACTIONS (4)
  - Dry mouth [Not Recovered/Not Resolved]
  - Dizziness [Not Recovered/Not Resolved]
  - Heart rate increased [Unknown]
  - Hypersensitivity [Unknown]

NARRATIVE: CASE EVENT DATE: 20240721
